FAERS Safety Report 25806490 (Version 1)
Quarter: 2025Q3

REPORT INFORMATION
  Report Type: Spontaneous
  Country: AU (occurrence: AU)
  Receive Date: 20250916
  Receipt Date: 20250916
  Transmission Date: 20251021
  Serious: Yes (Other)
  Sender: AMGEN
  Company Number: AU-AMGEN-AUSSP2025180821

PATIENT
  Age: 67 Year
  Sex: Female

DRUGS (6)
  1. PROLIA [Suspect]
     Active Substance: DENOSUMAB
     Indication: Osteoporosis
     Dosage: UNK UNK, Q6MO
     Route: 065
     Dates: start: 2019, end: 2024
  2. XGEVA [Suspect]
     Active Substance: DENOSUMAB
     Indication: Breast cancer metastatic
     Dosage: UNK UNK, QMO
     Route: 065
     Dates: start: 2024
  3. PREDNISOLONE [Concomitant]
     Active Substance: PREDNISOLONE
  4. RIVAROXABAN [Concomitant]
     Active Substance: RIVAROXABAN
  5. NEBIVOLOL [Concomitant]
     Active Substance: NEBIVOLOL
  6. DIGOXIN [Concomitant]
     Active Substance: DIGOXIN

REACTIONS (2)
  - Breast cancer [Unknown]
  - Tooth disorder [Unknown]
